FAERS Safety Report 4980276-2 (Version None)
Quarter: 2006Q2

REPORT INFORMATION
  Report Type: 
  Country: None (occurrence: None)
  Receive Date: 20060418
  Receipt Date: 20060403
  Transmission Date: 20061013
  Serious: Yes (Hospitalization)
  Sender: FDA-Public Use
  Company Number: 2006-BP-03846RO

PATIENT
  Age: 32 Year
  Sex: Male

DRUGS (3)
  1. ZIDOVUDINE [Suspect]
     Indication: HIV INFECTION
     Dates: start: 20040501
  2. LAMIVUDINE [Suspect]
     Indication: HIV INFECTION
     Dates: start: 20040501
  3. EFAVIRENZ [Suspect]
     Indication: HIV INFECTION
     Dates: start: 20040501

REACTIONS (3)
  - CONFUSIONAL STATE [None]
  - HEMIPARESIS [None]
  - PROGRESSIVE MULTIFOCAL LEUKOENCEPHALOPATHY [None]
